FAERS Safety Report 12996709 (Version 1)
Quarter: 2016Q4

REPORT INFORMATION
  Report Type: Report from Study
  Country: DE (occurrence: DE)
  Receive Date: 20161204
  Receipt Date: 20161204
  Transmission Date: 20170207
  Serious: Yes (Hospitalization)
  Sender: FDA-Public Use
  Company Number: DE-BIOGEN-2016BI00323995

PATIENT
  Age: 34 Year
  Sex: Female
  Weight: 64 kg

DRUGS (1)
  1. TECFIDERA [Suspect]
     Active Substance: DIMETHYL FUMARATE
     Indication: MULTIPLE SCLEROSIS
     Route: 048
     Dates: start: 20161004

REACTIONS (2)
  - Multiple sclerosis relapse [Not Recovered/Not Resolved]
  - Groin abscess [Not Recovered/Not Resolved]

NARRATIVE: CASE EVENT DATE: 201610
